FAERS Safety Report 6334489-8 (Version None)
Quarter: 2009Q3

REPORT INFORMATION
  Report Type: 
  Country: None (occurrence: None)
  Receive Date: 20090826
  Receipt Date: 20090527
  Transmission Date: 20100115
  Serious: No
  Sender: FDA-Public Use
  Company Number: 1-18613240

PATIENT
  Age: 54 Year
  Sex: Female
  Weight: 59.8748 kg

DRUGS (2)
  1. DESONIDE [Suspect]
     Indication: RASH
     Dosage: TWICE DAILY, TOPICAL
     Route: 061
     Dates: start: 20090201
  2. BIEST (ESTRIOL AND ESTRADIOL) [Concomitant]

REACTIONS (1)
  - DRUG INEFFECTIVE [None]
